FAERS Safety Report 8675509 (Version 2)
Quarter: 2012Q4

REPORT INFORMATION
  Report Type: 
  Country: JP (occurrence: JP)
  Receive Date: 20120720
  Receipt Date: 20121001
  Transmission Date: 20130627
  Serious: Yes (Death, Life-Threatening)
  Sender: FDA-Public Use
  Company Number: JP-ROCHE-1086424

PATIENT
  Age: 77 Year
  Sex: Female
  Weight: 57 kg

DRUGS (18)
  1. PEGASYS [Suspect]
     Indication: HEPATITIS C
     Route: 058
     Dates: start: 20110311, end: 20110401
  2. PEGASYS [Suspect]
     Indication: HEPATITIS C
     Route: 058
     Dates: start: 20110415, end: 20110415
  3. PEGASYS [Suspect]
     Indication: HEPATITIS C
     Route: 058
     Dates: start: 20110428, end: 20110916
  4. PEGASYS [Suspect]
     Indication: HEPATITIS C
     Route: 058
     Dates: start: 20110930, end: 20111014
  5. PEGASYS [Suspect]
     Indication: HEPATITIS C
     Route: 058
     Dates: start: 20111028, end: 20111209
  6. PEGASYS [Suspect]
     Indication: HEPATITIS C
     Route: 058
     Dates: start: 20111222, end: 20120217
  7. PEGASYS [Suspect]
     Indication: HEPATITIS C
     Route: 058
     Dates: start: 20120302, end: 20120302
  8. URSO [Concomitant]
     Indication: HEPATITIS C
     Route: 048
     Dates: end: 20120323
  9. NEOPHAGEN [Concomitant]
     Indication: HEPATITIS C
     Route: 048
     Dates: start: 20100402, end: 20110707
  10. NEOPHAGEN [Concomitant]
     Indication: HEPATITIS C
     Route: 042
     Dates: end: 20120419
  11. PROMAC [Concomitant]
     Indication: GASTROOESOPHAGEAL REFLUX DISEASE
     Route: 048
     Dates: start: 20091211, end: 20120322
  12. AMLODIPINE [Concomitant]
     Indication: HYPERTENSION
     Route: 048
     Dates: end: 20120323
  13. BLOPRESS [Concomitant]
     Indication: HYPERTENSION
     Route: 048
     Dates: end: 20120323
  14. NICOTINAMIDE [Concomitant]
     Route: 048
     Dates: end: 20120323
  15. MANIDIPINE HYDROCHLORIDE [Concomitant]
     Indication: HYPERTENSION
     Route: 048
     Dates: end: 20120323
  16. MEILAX [Concomitant]
     Indication: INSOMNIA
     Route: 048
     Dates: start: 20101008, end: 201103
  17. CLINORIL [Concomitant]
     Indication: PROPHYLAXIS
     Route: 048
     Dates: start: 20110311, end: 20120323
  18. GASTER [Concomitant]
     Indication: PROPHYLAXIS
     Route: 048
     Dates: start: 20110311, end: 20120323

REACTIONS (3)
  - Interstitial lung disease [Fatal]
  - Pneumocystis jiroveci pneumonia [Recovering/Resolving]
  - Multi-organ failure [Fatal]
